FAERS Safety Report 7843429-1 (Version None)
Quarter: 2011Q4

REPORT INFORMATION
  Report Type: 
  Country: None (occurrence: None)
  Receive Date: 20111020
  Receipt Date: 20111011
  Transmission Date: 20120403
  Serious: Yes (Hospitalization, Other)
  Sender: FDA-Public Use
  Company Number: 2011SP026045

PATIENT
  Age: 49 Year
  Sex: Female
  Weight: 75 kg

DRUGS (1)
  1. CERAZETTE (DESOGESTREL /00754001/) [Suspect]
     Indication: UTERINE LEIOMYOMA
     Dosage: PO
     Route: 048
     Dates: start: 20110201, end: 20110601

REACTIONS (2)
  - MENSTRUATION IRREGULAR [None]
  - ANAEMIA [None]
